FAERS Safety Report 7431966-3 (Version None)
Quarter: 2011Q2

REPORT INFORMATION
  Report Type: 
  Country: None (occurrence: None)
  Receive Date: 20110420
  Receipt Date: 20110420
  Transmission Date: 20111010
  Serious: Yes (Hospitalization, Other)
  Sender: FDA-Public Use
  Company Number: None

PATIENT
  Age: 55 Year
  Sex: Female
  Weight: 70.7611 kg

DRUGS (9)
  1. GEODON [Concomitant]
  2. RISPERDAL [Concomitant]
  3. PROSAC [Concomitant]
  4. ATIVAN [Concomitant]
  5. EFFEXOR XR [Concomitant]
  6. DBT THERAPY [Concomitant]
  7. CYMBALTA [Suspect]
     Indication: DEPRESSION
     Dosage: 1 CAPSULE 60 MG ONCE A DAY PO
     Route: 048
     Dates: start: 20080310, end: 20081228
  8. PAXIL [Concomitant]
  9. IMIPRAMINE [Concomitant]

REACTIONS (11)
  - ROAD TRAFFIC ACCIDENT [None]
  - PAIN IN EXTREMITY [None]
  - SUICIDAL IDEATION [None]
  - PERSONALITY CHANGE [None]
  - ANXIETY [None]
  - PRODUCT QUALITY ISSUE [None]
  - THINKING ABNORMAL [None]
  - CONDITION AGGRAVATED [None]
  - MOOD ALTERED [None]
  - WITHDRAWAL SYNDROME [None]
  - LOSS OF EMPLOYMENT [None]
